FAERS Safety Report 9102732 (Version 2)
Quarter: 2013Q2

REPORT INFORMATION
  Report Type: Spontaneous
  Country: US (occurrence: US)
  Receive Date: 20130220
  Receipt Date: 20130603
  Transmission Date: 20140414
  Serious: Yes (Hospitalization)
  Sender: FDA-Public Use
  Company Number: US-B.I. PHARMACEUTICALS,INC./RIDGEFIELD-2013-BI-03933BP

PATIENT
  Age: 69 Year
  Sex: Female
  Weight: 72.57 kg

DRUGS (14)
  1. PRADAXA [Suspect]
     Indication: ATRIAL FIBRILLATION
     Dosage: 300 MG
     Route: 048
     Dates: start: 20111020, end: 20120210
  2. LEVOTHYROXINE [Concomitant]
     Dosage: 70 MCG
     Route: 048
  3. CYMBALTA [Concomitant]
     Dosage: 30 MG
     Route: 048
  4. FOLIC ACID [Concomitant]
     Dosage: 1 MG
     Route: 048
  5. MOBIC [Concomitant]
     Dosage: 15 MG
     Route: 048
  6. LOSARTAN [Concomitant]
     Dosage: 100 MG
     Route: 048
  7. PLAVIX [Concomitant]
     Dosage: 75 MG
     Route: 048
  8. FUROSEMIDE [Concomitant]
     Dosage: 40 MG
     Route: 048
  9. DIGOXIN [Concomitant]
     Dosage: 125 MCG
     Route: 048
  10. OMEPRAZOLE [Concomitant]
     Dosage: 40 MG
     Route: 048
  11. FLEXERIL [Concomitant]
     Dosage: 20 MG
     Route: 048
  12. GABAPENTIN [Concomitant]
     Dosage: 2400 MG
     Route: 048
  13. AMLODIPINE [Concomitant]
     Dosage: 5 MG
     Route: 048
  14. SIMVASTATIN [Concomitant]
     Dosage: 40 MG
     Route: 048

REACTIONS (1)
  - Lower gastrointestinal haemorrhage [Recovered/Resolved]
